FAERS Safety Report 6175426-9 (Version None)
Quarter: 2009Q2

REPORT INFORMATION
  Report Type: 
  Country: None (occurrence: None)
  Receive Date: 20090429
  Receipt Date: 20090414
  Transmission Date: 20091009
  Serious: Yes (Death, Hospitalization)
  Sender: FDA-Public Use
  Company Number: KV200900454

PATIENT
  Age: 66 Year
  Sex: Female

DRUGS (12)
  1. ISOSORBIDE MONONITRATE [Suspect]
     Indication: ANGINA PECTORIS
     Dosage: 60 MG, QD, ORAL
     Route: 048
     Dates: end: 20080913
  2. ATENOLOL [Concomitant]
  3. GLUCOPHAGE [Concomitant]
  4. GLIPIZIDE [Concomitant]
  5. PLAVIX [Concomitant]
  6. BENICAR [Concomitant]
  7. NIASPAN [Concomitant]
  8. ASPIRIN [Concomitant]
  9. TRAZODONE HCL [Concomitant]
  10. LISINOPRIL HYDROCHLORTHIAZID (HYDROCHLOROTHIAZIDE, LISINOPRIL) [Concomitant]
  11. ACTOS [Concomitant]
  12. COLESTID [Concomitant]

REACTIONS (7)
  - ACUTE CORONARY SYNDROME [None]
  - BRADYCARDIA [None]
  - CARDIOGENIC SHOCK [None]
  - DIZZINESS [None]
  - HYPERHIDROSIS [None]
  - MYOCARDIAL INFARCTION [None]
  - PULSE ABSENT [None]
